FAERS Safety Report 5576339-3 (Version None)
Quarter: 2007Q4

REPORT INFORMATION
  Report Type: 
  Country: None (occurrence: None)
  Receive Date: 20071228
  Receipt Date: 20071218
  Transmission Date: 20080405
  Serious: Yes (Hospitalization, Other)
  Sender: FDA-Public Use
  Company Number: JP-ROCHE-537426

PATIENT
  Age: 42 Year
  Sex: Female
  Weight: 51 kg

DRUGS (2)
  1. RIBAVIRIN [Suspect]
     Route: 065
     Dates: start: 20040201, end: 20040401
  2. INTERFERON ALFA-2B [Suspect]
     Route: 065
     Dates: start: 20040201, end: 20040401

REACTIONS (3)
  - CRYOGLOBULINAEMIA [None]
  - FACIAL PALSY [None]
  - HYPERTHYROIDISM [None]
